FAERS Safety Report 15266590 (Version 1)
Quarter: 2018Q3

REPORT INFORMATION
  Report Type: Report from Study
  Country: BR (occurrence: BR)
  Receive Date: 20180810
  Receipt Date: 20180810
  Transmission Date: 20181010
  Serious: Yes (Hospitalization)
  Sender: FDA-Public Use
  Company Number: PHHY2018BR031709

PATIENT
  Age: 58 Year
  Sex: Male
  Weight: 80 kg

DRUGS (4)
  1. ENTRESTO [Suspect]
     Active Substance: SACUBITRIL\VALSARTAN
     Dosage: UNK (24/26 MG)
     Route: 048
     Dates: start: 201805, end: 201807
  2. ENTRESTO [Suspect]
     Active Substance: SACUBITRIL\VALSARTAN
     Dosage: 24 MG, UNK (2 TABLETS)
     Route: 048
  3. ENTRESTO [Suspect]
     Active Substance: SACUBITRIL\VALSARTAN
     Indication: CARDIAC FAILURE
     Dosage: 1 DF, BID (SACUBITRIL 49 MG/ VALSARTAN 51 MG)
     Route: 048
     Dates: start: 20180615
  4. ENTRESTO [Suspect]
     Active Substance: SACUBITRIL\VALSARTAN
     Dosage: 49 OT, UNK (1 TABLET EVERY 12 HOURS)
     Route: 048
     Dates: start: 201807

REACTIONS (3)
  - Oedema peripheral [Recovering/Resolving]
  - Fluid retention [Recovering/Resolving]
  - Heart rate decreased [Not Recovered/Not Resolved]

NARRATIVE: CASE EVENT DATE: 20180621
